FAERS Safety Report 13707039 (Version 4)
Quarter: 2017Q4

REPORT INFORMATION
  Report Type: Spontaneous
  Country: JP (occurrence: JP)
  Receive Date: 20170630
  Receipt Date: 20171018
  Transmission Date: 20180320
  Serious: Yes (Other)
  Sender: FDA-Public Use
  Company Number: JP-CELGENEUS-JPN-20170607498

PATIENT
  Age: 63 Year
  Sex: Male

DRUGS (5)
  1. OTEZLA [Suspect]
     Active Substance: APREMILAST
     Dosage: 30 MILLIGRAM
     Route: 048
     Dates: start: 20170705
  2. OXAROL [Concomitant]
     Active Substance: MAXACALCITOL
     Indication: PSORIASIS
     Dosage: 4 MICROGRAM
     Route: 062
  3. FEBURIC [Concomitant]
     Active Substance: FEBUXOSTAT
     Indication: HYPERURICAEMIA
     Dosage: 10 MILLIGRAM
     Route: 048
  4. OTEZLA [Suspect]
     Active Substance: APREMILAST
     Indication: PSORIASIS
     Dosage: 60 MILLIGRAM
     Route: 048
     Dates: start: 20170324, end: 20170608
  5. KINDAVATE [Concomitant]
     Active Substance: CLOBETASONE BUTYRATE
     Indication: PSORIASIS
     Dosage: 4 MICROGRAM
     Route: 062

REACTIONS (2)
  - Dyspnoea [Recovered/Resolved]
  - Arrhythmia [Recovered/Resolved]

NARRATIVE: CASE EVENT DATE: 20170421
